FAERS Safety Report 4448023-0 (Version None)
Quarter: 2004Q3

REPORT INFORMATION
  Report Type: 
  Country: None (occurrence: None)
  Receive Date: 20040823
  Receipt Date: 20031124
  Transmission Date: 20050211
  Serious: Yes (Hospitalization)
  Sender: FDA-Public Use
  Company Number: 040128-0000212

PATIENT
  Age: 39 Year
  Sex: Female

DRUGS (3)
  1. TRANXENE [Suspect]
     Dosage: 5 MG QD PO
     Route: 048
     Dates: start: 20030430, end: 20030613
  2. DEPAKENE [Suspect]
     Dosage: 500 MG QD PO
     Route: 048
     Dates: start: 20030430, end: 20030613
  3. TEGRETOL [Suspect]
     Dosage: 1 GM; QD; PO
     Route: 048
     Dates: start: 20030430, end: 20030613

REACTIONS (1)
  - HEPATIC ENZYME INCREASED [None]
